FAERS Safety Report 5778718-8 (Version None)
Quarter: 2008Q2

REPORT INFORMATION
  Report Type: 
  Country: None (occurrence: None)
  Receive Date: 20080619
  Receipt Date: 20080611
  Transmission Date: 20081010
  Serious: Yes (Congenital Anomaly, Other)
  Sender: FDA-Public Use
  Company Number: GB-ABBOTT-08P-167-0441159-00

PATIENT
  Sex: Female

DRUGS (1)
  1. EPILIM [Suspect]
     Indication: DRUG EXPOSURE DURING PREGNANCY
     Route: 064

REACTIONS (31)
  - ANOMALY OF ORBIT, CONGENITAL [None]
  - BLISTER [None]
  - BRAIN SCAN ABNORMAL [None]
  - CAMPTODACTYLY CONGENITAL [None]
  - CARDIAC MURMUR [None]
  - CLEFT PALATE [None]
  - CONGENITAL EYE DISORDER [None]
  - CONGENITAL EYELID MALFORMATION [None]
  - CONGENITAL HAIR DISORDER [None]
  - CONGENITAL NOSE MALFORMATION [None]
  - COORDINATION ABNORMAL [None]
  - DEPRESSED LEVEL OF CONSCIOUSNESS [None]
  - DEVELOPMENTAL DELAY [None]
  - DRUG EXPOSURE DURING PREGNANCY [None]
  - DYSMORPHISM [None]
  - FEBRILE CONVULSION [None]
  - FEEDING DISORDER NEONATAL [None]
  - FOETAL ANTICONVULSANT SYNDROME [None]
  - FOOT DEFORMITY [None]
  - GAIT DISTURBANCE [None]
  - HAEMANGIOMA OF SKIN [None]
  - HYPOKINESIA [None]
  - ILLITERACY [None]
  - LIGAMENT LAXITY [None]
  - LIP DISORDER [None]
  - LOW SET EARS [None]
  - LOWER RESPIRATORY TRACT INFECTION [None]
  - RESPIRATORY DISTRESS [None]
  - SPEECH DISORDER [None]
  - SPEECH DISORDER DEVELOPMENTAL [None]
  - WEIGHT GAIN POOR [None]
